FAERS Safety Report 6633323-6 (Version None)
Quarter: 2010Q1

REPORT INFORMATION
  Report Type: 
  Country: None (occurrence: None)
  Receive Date: 20100312
  Receipt Date: 20100219
  Transmission Date: 20100710
  Serious: Yes (Other)
  Sender: FDA-Public Use
  Company Number: US-PFIZER INC-2010022888

PATIENT

DRUGS (1)
  1. NEURONTIN [Suspect]
     Dosage: UNK

REACTIONS (1)
  - THYROXINE FREE DECREASED [None]
